FAERS Safety Report 5976671-5 (Version None)
Quarter: 2008Q4

REPORT INFORMATION
  Report Type: 
  Country: None (occurrence: None)
  Receive Date: 20081203
  Receipt Date: 20081126
  Transmission Date: 20090506
  Serious: Yes (Hospitalization, Other)
  Sender: FDA-Public Use
  Company Number: FR-JNJFOC-20081006823

PATIENT
  Sex: Male
  Weight: 71.8 kg

DRUGS (5)
  1. RISPERDAL CONSTA [Suspect]
     Indication: SCHIZOPHRENIA
     Route: 030
  2. TAHOR [Concomitant]
     Indication: DYSLIPIDAEMIA
     Route: 048
  3. RAMIPRIL [Concomitant]
     Indication: HYPERTENSION
     Route: 048
  4. AMLOD [Concomitant]
     Indication: HYPERTENSION
     Route: 048
  5. TERCIAN [Concomitant]
     Indication: PSYCHOTIC DISORDER
     Route: 048

REACTIONS (4)
  - BLOOD ALBUMIN DECREASED [None]
  - TYPE 1 DIABETES MELLITUS [None]
  - URINARY TRACT INFECTION [None]
  - WEIGHT DECREASED [None]
